FAERS Safety Report 15350642 (Version 1)
Quarter: 2018Q3

REPORT INFORMATION
  Report Type: Spontaneous
  Country: FR (occurrence: FR)
  Receive Date: 20180905
  Receipt Date: 20180905
  Transmission Date: 20181010
  Serious: Yes (Hospitalization)
  Sender: FDA-Public Use
  Company Number: FR-CONCORDIA PHARMACEUTICALS INC.-E2B_00016574

PATIENT
  Age: 32 Year
  Sex: Male

DRUGS (3)
  1. PREDNISOLONE. [Suspect]
     Active Substance: PREDNISOLONE
     Indication: BACK PAIN
     Route: 048
     Dates: start: 20120509, end: 20120510
  2. TETRAZEPAM [Suspect]
     Active Substance: TETRAZEPAM
     Indication: BACK PAIN
     Route: 048
     Dates: start: 20120509, end: 20120510
  3. IXPRIM [Suspect]
     Active Substance: ACETAMINOPHEN\TRAMADOL HYDROCHLORIDE
     Indication: BACK PAIN
     Dosage: 20 TABLETS RECEIVED WITHIN 2 DAYS; STRENGTH: 37.5 MG
     Route: 048
     Dates: start: 20120509, end: 20120510

REACTIONS (4)
  - Overdose [Unknown]
  - Automatism [Not Recovered/Not Resolved]
  - Hallucination, auditory [Not Recovered/Not Resolved]
  - Delirium [Not Recovered/Not Resolved]

NARRATIVE: CASE EVENT DATE: 20120511
